FAERS Safety Report 24904063 (Version 1)
Quarter: 2025Q1

REPORT INFORMATION
  Report Type: Report from Study
  Country: HU (occurrence: HU)
  Receive Date: 20250130
  Receipt Date: 20250130
  Transmission Date: 20250409
  Serious: Yes (Other)
  Sender: TAKEDA
  Company Number: HU-TAKEDA-2024TUS129484

PATIENT
  Age: 73 Year
  Sex: Female

DRUGS (1)
  1. FRUQUINTINIB [Suspect]
     Active Substance: FRUQUINTINIB
     Indication: Colorectal cancer metastatic
     Dosage: 5 MILLIGRAM, QD
     Dates: start: 20240304, end: 20240709

REACTIONS (1)
  - Colorectal cancer metastatic [Recovering/Resolving]

NARRATIVE: CASE EVENT DATE: 20240709
